FAERS Safety Report 9256366 (Version 1)
Quarter: 2013Q2

REPORT INFORMATION
  Report Type: Spontaneous
  Country: US (occurrence: US)
  Receive Date: 20130425
  Receipt Date: 20130425
  Transmission Date: 20140414
  Serious: No
  Sender: FDA-Public Use
  Company Number: US-009507513-1304USA008443

PATIENT
  Sex: Female

DRUGS (2)
  1. SAPHRIS [Suspect]
     Dosage: 10 MG, UNK
     Route: 048
  2. SAPHRIS [Suspect]
     Dosage: 5 UNK, UNK
     Dates: start: 20130413

REACTIONS (4)
  - Psychotic disorder [Unknown]
  - Extrapyramidal disorder [Unknown]
  - Eye movement disorder [Unknown]
  - Exposure during pregnancy [Unknown]
